FAERS Safety Report 10090342 (Version 1)
Quarter: 2014Q2

REPORT INFORMATION
  Report Type: Spontaneous
  Country: US (occurrence: US)
  Receive Date: 20140421
  Receipt Date: 20140421
  Transmission Date: 20141212
  Serious: No
  Sender: FDA-Public Use
  Company Number: US-GILEAD-2014-0099622

PATIENT
  Age: 64 Year
  Sex: Female

DRUGS (4)
  1. SOFOSBUVIR [Suspect]
     Indication: HEPATITIS C
     Dosage: 2 DF, QD
     Route: 065
  2. SOFOSBUVIR [Suspect]
     Dosage: 1 DF, QD
     Route: 065
  3. RIBAVIRIN [Concomitant]
  4. PEGYLATED INTERFERON ALFA-2A [Concomitant]

REACTIONS (1)
  - Overdose [Recovered/Resolved]
